FAERS Safety Report 6813769-3 (Version None)
Quarter: 2010Q3

REPORT INFORMATION
  Report Type: 
  Country: None (occurrence: None)
  Receive Date: 20100701
  Receipt Date: 20100628
  Transmission Date: 20110219
  Serious: Yes (Life-Threatening)
  Sender: FDA-Public Use
  Company Number: IN-GILEAD-2010-0030083

PATIENT
  Sex: Male
  Weight: 68.5 kg

DRUGS (2)
  1. TRUVADA [Suspect]
     Indication: HIV INFECTION
     Route: 048
     Dates: start: 20100406
  2. EFAVIRENZ [Suspect]
     Indication: HIV INFECTION
     Dates: start: 20100406

REACTIONS (1)
  - SUICIDAL IDEATION [None]
